FAERS Safety Report 5010437-8 (Version None)
Quarter: 2006Q2

REPORT INFORMATION
  Report Type: 
  Country: None (occurrence: None)
  Receive Date: 20060523
  Receipt Date: 20060510
  Transmission Date: 20061013
  Serious: Yes (Other)
  Sender: FDA-Public Use
  Company Number: 2006062394

PATIENT
  Age: 32 Year
  Sex: Male
  Weight: 52 kg

DRUGS (2)
  1. DILANTIN [Suspect]
     Indication: EPILEPSY
     Dosage: 430 MG (430 MG, 1 IN 1 D), ORAL
     Route: 048
     Dates: start: 19870925, end: 19871027
  2. DILANTIN [Suspect]
     Indication: ILL-DEFINED DISORDER
     Dosage: 430 MG (430 MG, 1 IN 1 D), ORAL
     Route: 048
     Dates: start: 19870925, end: 19871027

REACTIONS (2)
  - GAMMA-GLUTAMYLTRANSFERASE INCREASED [None]
  - HEPATIC FUNCTION ABNORMAL [None]
